FAERS Safety Report 17392534 (Version 1)
Quarter: 2020Q1

REPORT INFORMATION
  Report Type: Spontaneous
  Country: GB (occurrence: GB)
  Receive Date: 20200207
  Receipt Date: 20200207
  Transmission Date: 20200409
  Serious: Yes (Hospitalization)
  Sender: FDA-Public Use
  Company Number: NVSC2020GB030193

PATIENT
  Age: 38 Year
  Sex: Male

DRUGS (2)
  1. CODEINE [Suspect]
     Active Substance: CODEINE
     Indication: PRODUCT USED FOR UNKNOWN INDICATION
     Dosage: 70 DF, Q48H (70 CO-CODAMOL TABLETS- CODEINE STRENGTH UNKNOWN)
     Route: 048
  2. ACETAMINOPHEN (PARACETAMOL) [Suspect]
     Active Substance: ACETAMINOPHEN
     Indication: PRODUCT USED FOR UNKNOWN INDICATION
     Dosage: 70 DF, Q48H (70 CO-CODAMOL TABLETS- PARACETAMOL STRENGTH UNKNOWN)
     Route: 048

REACTIONS (1)
  - Intentional overdose [Unknown]
